FAERS Safety Report 5220958-0 (Version None)
Quarter: 2007Q1

REPORT INFORMATION
  Report Type: 
  Country: None (occurrence: None)
  Receive Date: 20070124
  Receipt Date: 20070112
  Transmission Date: 20070707
  Serious: Yes (Death, Hospitalization)
  Sender: FDA-Public Use
  Company Number: 2006JP001914

PATIENT
  Age: 55 Year
  Sex: Male
  Weight: 44 kg

DRUGS (12)
  1. FUNGUARD(MICAFUNGIN) INJECTION [Suspect]
     Indication: BRONCHOPULMONARY ASPERGILLOSIS
     Dosage: 150 MG, IV DRIP; SEE IMAGE
     Route: 041
     Dates: start: 20060625, end: 20060626
  2. FUNGUARD(MICAFUNGIN) INJECTION [Suspect]
     Indication: BRONCHOPULMONARY ASPERGILLOSIS
     Dosage: 150 MG, IV DRIP; SEE IMAGE
     Route: 041
     Dates: start: 20051027
  3. LASIX [Concomitant]
  4. ALDACTONE [Concomitant]
  5. SOLDACTONE (POTASSIUM CANRENOATE) [Concomitant]
  6. AMARYL [Concomitant]
  7. GASTER D ORODISPERSABLE CR [Concomitant]
  8. BASEN (VOGLIBOSE) ORODISPERSABLE CR [Concomitant]
  9. LIVACT (AMINO ACIDS NOS) [Concomitant]
  10. URSO (URSODEOXYCHOLIC ACID) [Concomitant]
  11. SELBEX (TEPRENONE) [Concomitant]
  12. AMINOLEBAN (AMINO ACIDS NOS) [Concomitant]

REACTIONS (39)
  - AORTIC ARTERIOSCLEROSIS [None]
  - ARTERIOSCLEROSIS [None]
  - ASCITES [None]
  - BACTERIAL INFECTION [None]
  - BILE DUCT STONE [None]
  - BLOOD GLUCOSE INCREASED [None]
  - BLOOD PRESSURE DECREASED [None]
  - BRAIN ABSCESS [None]
  - CHOLELITHIASIS [None]
  - COLON ADENOMA [None]
  - DEPRESSED LEVEL OF CONSCIOUSNESS [None]
  - DIABETES MELLITUS INADEQUATE CONTROL [None]
  - DISSEMINATED INTRAVASCULAR COAGULATION [None]
  - DYSPHORIA [None]
  - FIBROMA [None]
  - HAEMORRHAGIC DIATHESIS [None]
  - HEPATIC FAILURE [None]
  - HEPATIC NECROSIS [None]
  - HEPATIC NEOPLASM MALIGNANT [None]
  - HYPERHIDROSIS [None]
  - LIVER ABSCESS [None]
  - LIVER DISORDER [None]
  - LOSS OF CONSCIOUSNESS [None]
  - MULTI-ORGAN FAILURE [None]
  - MYDRIASIS [None]
  - NAUSEA [None]
  - PERIPHERAL COLDNESS [None]
  - PULMONARY CONGESTION [None]
  - PULMONARY NECROSIS [None]
  - PYREXIA [None]
  - RENAL ABSCESS [None]
  - RENAL DISORDER [None]
  - RENAL NECROSIS [None]
  - SEPSIS [None]
  - SHOCK [None]
  - SPLENIC ABSCESS [None]
  - SPLENOMEGALY [None]
  - UPPER GASTROINTESTINAL HAEMORRHAGE [None]
  - VARICES OESOPHAGEAL [None]
